FAERS Safety Report 18959862 (Version 2)
Quarter: 2021Q1

REPORT INFORMATION
  Report Type: Spontaneous
  Country: US (occurrence: US)
  Receive Date: 20210303
  Receipt Date: 20210324
  Transmission Date: 20210420
  Serious: No
  Sender: FDA-Public Use
  Company Number: US-TEVA-2021-US-1885508

PATIENT
  Age: 55 Year
  Sex: Female

DRUGS (2)
  1. TRIENTINE HYDROCHLORIDE. [Suspect]
     Active Substance: TRIENTINE HYDROCHLORIDE
     Route: 065
  2. GALZIN [Suspect]
     Active Substance: ZINC ACETATE
     Route: 065

REACTIONS (1)
  - Anxiety [Not Recovered/Not Resolved]
